FAERS Safety Report 5882734-5 (Version None)
Quarter: 2008Q3

REPORT INFORMATION
  Report Type: 
  Country: None (occurrence: None)
  Receive Date: 20080913
  Receipt Date: 20080814
  Transmission Date: 20090109
  Serious: No
  Sender: FDA-Public Use
  Company Number: US-ABBOTT-08P-163-0470908-00

PATIENT
  Sex: Female

DRUGS (1)
  1. HUMIRA [Suspect]
     Indication: PSORIASIS
     Dosage: DAY 1
     Dates: start: 20080810

REACTIONS (5)
  - INFLUENZA LIKE ILLNESS [None]
  - INJECTION SITE NODULE [None]
  - MALAISE [None]
  - NAUSEA [None]
  - PAIN [None]
